FAERS Safety Report 5934096-2 (Version None)
Quarter: 2008Q4

REPORT INFORMATION
  Report Type: 
  Country: None (occurrence: None)
  Receive Date: 20081029
  Receipt Date: 20081023
  Transmission Date: 20090506
  Serious: Yes (Life-Threatening)
  Sender: FDA-Public Use
  Company Number: JP-MERCK-0810USA04459

PATIENT
  Sex: Male

DRUGS (2)
  1. COZAAR [Suspect]
     Indication: RENAL DISORDER
     Route: 048
  2. LASIX [Concomitant]
     Route: 065

REACTIONS (1)
  - TOXIC EPIDERMAL NECROLYSIS [None]
